FAERS Safety Report 13299578 (Version 1)
Quarter: 2017Q1

REPORT INFORMATION
  Report Type: Spontaneous
  Country: GB (occurrence: GB)
  Receive Date: 20170306
  Receipt Date: 20170306
  Transmission Date: 20170428
  Serious: Yes (Other)
  Sender: FDA-Public Use
  Company Number: GB-PFIZER INC-2017097950

PATIENT
  Age: 96 Year
  Sex: Male

DRUGS (1)
  1. EPANUTIN [Suspect]
     Active Substance: PHENYTOIN SODIUM
     Dosage: UNK

REACTIONS (2)
  - Pneumonia aspiration [Unknown]
  - Dysphagia [Unknown]
